FAERS Safety Report 20814092 (Version 3)
Quarter: 2022Q2

REPORT INFORMATION
  Report Type: Spontaneous
  Country: JP (occurrence: JP)
  Receive Date: 20220511
  Receipt Date: 20220602
  Transmission Date: 20220720
  Serious: Yes (Hospitalization, Other)
  Sender: FDA-Public Use
  Company Number: JP-PFIZER INC-202200670592

PATIENT
  Age: 77 Year
  Sex: Female
  Weight: 53.2 kg

DRUGS (7)
  1. INLYTA [Suspect]
     Active Substance: AXITINIB
     Dosage: 6 MG, DAILY
     Route: 048
     Dates: start: 20220118
  2. INLYTA [Suspect]
     Active Substance: AXITINIB
     Dosage: 8 MG
     Route: 048
     Dates: start: 20220125
  3. INLYTA [Suspect]
     Active Substance: AXITINIB
     Dosage: 6 MG
     Route: 048
     Dates: start: 20220201
  4. INLYTA [Suspect]
     Active Substance: AXITINIB
     Dosage: 8 MG
     Route: 048
     Dates: start: 20220208
  5. INLYTA [Suspect]
     Active Substance: AXITINIB
     Dosage: 10 MG
     Route: 048
     Dates: start: 20220216
  6. INLYTA [Suspect]
     Active Substance: AXITINIB
     Dosage: 6 MG, DAILY
     Route: 048
     Dates: start: 20220315, end: 20220315
  7. KEYTRUDA [Concomitant]
     Active Substance: PEMBROLIZUMAB
     Dosage: 200 MG, EVERY 3 WEEKS
     Dates: start: 20220118, end: 20220208

REACTIONS (3)
  - Hyperammonaemia [Recovered/Resolved]
  - Altered state of consciousness [Recovered/Resolved]
  - Tumour haemorrhage [Unknown]

NARRATIVE: CASE EVENT DATE: 20220226
